FAERS Safety Report 8444162-8 (Version None)
Quarter: 2012Q2

REPORT INFORMATION
  Report Type: 
  Country: None (occurrence: None)
  Receive Date: 20120618
  Receipt Date: 20120608
  Transmission Date: 20120825
  Serious: Yes (Hospitalization)
  Sender: FDA-Public Use
  Company Number: US-ASTRAZENECA-2012SE39228

PATIENT
  Age: 44 Year
  Sex: Male
  Weight: 88 kg

DRUGS (6)
  1. CIPROFLOXACIN [Concomitant]
     Route: 048
     Dates: start: 20070101
  2. ATENOLOL [Suspect]
     Route: 048
     Dates: start: 20070101
  3. ASPIRIN [Concomitant]
     Route: 048
     Dates: start: 20070101
  4. PANTOPRAZOLE [Concomitant]
     Route: 048
     Dates: start: 20070101
  5. PAROXETINE [Concomitant]
     Route: 048
     Dates: start: 20070101
  6. CRESTOR [Suspect]
     Indication: HYPERCHOLESTEROLAEMIA
     Route: 048
     Dates: start: 20110101

REACTIONS (3)
  - BLOOD CHOLESTEROL INCREASED [None]
  - MYOCARDIAL INFARCTION [None]
  - SEPSIS [None]
